FAERS Safety Report 12484939 (Version 2)
Quarter: 2016Q4

REPORT INFORMATION
  Report Type: Spontaneous
  Country: US (occurrence: US)
  Receive Date: 20160621
  Receipt Date: 20161117
  Transmission Date: 20170207
  Serious: No
  Sender: FDA-Public Use
  Company Number: US-GLAXOSMITHKLINE-US2016083220

PATIENT
  Age: 27 Year
  Sex: Female

DRUGS (9)
  1. SPIRIVA [Concomitant]
     Active Substance: TIOTROPIUM BROMIDE MONOHYDRATE
  2. ASTEPRO NASAL [Concomitant]
  3. QVAR [Concomitant]
     Active Substance: BECLOMETHASONE DIPROPIONATE
  4. BREO ELLIPTA [Concomitant]
     Active Substance: FLUTICASONE FUROATE\VILANTEROL TRIFENATATE
  5. CLOBETASOL [Concomitant]
     Active Substance: CLOBETASOL
  6. EPINEPHRINE. [Concomitant]
     Active Substance: EPINEPHRINE
  7. NUCALA [Suspect]
     Active Substance: MEPOLIZUMAB
     Indication: PRODUCT USED FOR UNKNOWN INDICATION
     Dosage: 100 MG, UNK
  8. SINGULAIR [Concomitant]
     Active Substance: MONTELUKAST SODIUM
  9. ZADITOR [Concomitant]
     Active Substance: KETOTIFEN FUMARATE

REACTIONS (5)
  - Anxiety [Unknown]
  - Heart rate increased [Unknown]
  - Dyspnoea [Unknown]
  - Diarrhoea [Unknown]
  - Chest discomfort [Unknown]
